FAERS Safety Report 5005766-8 (Version None)
Quarter: 2006Q2

REPORT INFORMATION
  Report Type: 
  Country: None (occurrence: None)
  Receive Date: 20060515
  Receipt Date: 20060427
  Transmission Date: 20061013
  Serious: Yes (Hospitalization, Other)
  Sender: FDA-Public Use
  Company Number: ENT 2006-0017

PATIENT
  Age: 77 Year
  Sex: Female
  Weight: 43 kg

DRUGS (8)
  1. COMTAN [Suspect]
     Indication: PARKINSON'S DISEASE
     Dosage: 200MG Q3H WHILE AWAKE ORAL
     Route: 048
     Dates: start: 20050101
  2. SINEMET [Suspect]
     Indication: PARKINSON'S DISEASE
     Dosage: 25/100 MG, 1 TAB 6X/DAY ORAL
     Route: 048
  3. AMANTADINE HCL [Concomitant]
  4. REMERON [Concomitant]
  5. PAXIL [Concomitant]
  6. SEROQUEL [Concomitant]
  7. FOSAMAX [Concomitant]
  8. TOPROL-XL [Concomitant]

REACTIONS (4)
  - ASTHENIA [None]
  - HAEMOLYTIC ANAEMIA [None]
  - PANCYTOPENIA [None]
  - SYNCOPE [None]
